FAERS Safety Report 18207307 (Version 1)
Quarter: 2020Q3

REPORT INFORMATION
  Report Type: Spontaneous
  Country: US (occurrence: US)
  Receive Date: 20200828
  Receipt Date: 20200828
  Transmission Date: 20201103
  Serious: No
  Sender: FDA-Public Use
  Company Number: US-PFIZER INC-2020323953

PATIENT
  Age: 57 Year
  Sex: Female
  Weight: 97.98 kg

DRUGS (1)
  1. PREMPRO [Suspect]
     Active Substance: ESTROGENS, CONJUGATED\MEDROXYPROGESTERONE ACETATE
     Indication: MENORRHAGIA
     Dosage: UNK UNK, 1X/DAY (0.625MG/5MG TABLET BY MOUTH, ONCE A DAY)
     Route: 048

REACTIONS (3)
  - Blood pressure abnormal [Unknown]
  - Off label use [Unknown]
  - Product use in unapproved indication [Unknown]
